FAERS Safety Report 8960744 (Version 3)
Quarter: 2013Q1

REPORT INFORMATION
  Report Type: Spontaneous
  Country: US (occurrence: US)
  Receive Date: 20121212
  Receipt Date: 20130212
  Transmission Date: 20140127
  Serious: No
  Sender: FDA-Public Use
  Company Number: US-PFIZER INC-2012308191

PATIENT
  Age: 51 Year
  Sex: Male

DRUGS (4)
  1. ZYVOX [Suspect]
     Indication: INFECTION
     Dosage: 500 MG, 2X/DAY
     Route: 048
     Dates: start: 20121101, end: 20121206
  2. GLIPIZIDE [Concomitant]
     Dosage: UNK
  3. METFORMIN [Concomitant]
     Dosage: UNK
  4. BENAZEPRIL [Concomitant]
     Dosage: UNK

REACTIONS (2)
  - Visual impairment [Recovered/Resolved]
  - Vision blurred [Recovering/Resolving]
